FAERS Safety Report 7993403-X (Version None)
Quarter: 2011Q4

REPORT INFORMATION
  Report Type: 
  Country: None (occurrence: None)
  Receive Date: 20111219
  Receipt Date: 20110209
  Transmission Date: 20120403
  Serious: No
  Sender: FDA-Public Use
  Company Number: US-ASTRAZENECA-2011SE08027

PATIENT
  Age: 71 Year
  Sex: Male

DRUGS (1)
  1. CRESTOR [Suspect]
     Indication: BLOOD CHOLESTEROL INCREASED
     Route: 048
     Dates: start: 20090101

REACTIONS (2)
  - PAIN IN EXTREMITY [None]
  - SLEEP DISORDER [None]
